FAERS Safety Report 19423639 (Version 1)
Quarter: 2021Q2

REPORT INFORMATION
  Report Type: Spontaneous
  Country: US (occurrence: US)
  Receive Date: 20210616
  Receipt Date: 20210616
  Transmission Date: 20210717
  Serious: No
  Sender: FDA-Public Use
  Company Number: US-PFIZER INC-2021295824

PATIENT
  Age: 68 Year
  Sex: Male
  Weight: 120 kg

DRUGS (15)
  1. INLYTA [Suspect]
     Active Substance: AXITINIB
     Indication: RENAL CELL CARCINOMA
     Dosage: 5 MG, 1X/DAY(1TAB EVERY 12 HOURS ON DAYS 1?28)
     Dates: start: 20210219
  2. TAMSULOSIN HCL [Concomitant]
     Active Substance: TAMSULOSIN HYDROCHLORIDE
  3. ISOSORBIDE DINITRATE. [Concomitant]
     Active Substance: ISOSORBIDE DINITRATE
  4. ATORVASTATIN CALCIUM. [Concomitant]
     Active Substance: ATORVASTATIN CALCIUM
  5. CABOMETYX [Concomitant]
     Active Substance: CABOZANTINIB S-MALATE
  6. HYDROCODONE BITARTRATE AND ACETAMINOPHEN [Concomitant]
     Active Substance: ACETAMINOPHEN\HYDROCODONE BITARTRATE
  7. HUMALOG [Concomitant]
     Active Substance: INSULIN LISPRO
  8. VITAMIN B?1 [Concomitant]
     Active Substance: THIAMINE HYDROCHLORIDE
  9. PLAVIX [Concomitant]
     Active Substance: CLOPIDOGREL BISULFATE
  10. FINASTERIDE. [Concomitant]
     Active Substance: FINASTERIDE
  11. VITAMIN D NOS [Concomitant]
     Active Substance: VITAMIN D NOS
  12. COENZYME Q10 [Concomitant]
     Active Substance: DIETARY SUPPLEMENT\UBIDECARENONE
  13. ELIQUIS [Concomitant]
     Active Substance: APIXABAN
  14. METOPROLOL SUCCINATE. [Concomitant]
     Active Substance: METOPROLOL SUCCINATE
  15. TOUJEO MAX [Concomitant]
     Active Substance: INSULIN GLARGINE

REACTIONS (1)
  - Hepatic enzyme increased [Recovered/Resolved]
